FAERS Safety Report 6312151-5 (Version None)
Quarter: 2009Q3

REPORT INFORMATION
  Report Type: 
  Country: None (occurrence: None)
  Receive Date: 20090813
  Receipt Date: 20090813
  Transmission Date: 20100115
  Serious: Yes (Death)
  Sender: FDA-Public Use
  Company Number: None

PATIENT
  Sex: Male
  Weight: 60.782 kg

DRUGS (4)
  1. AMIODARONE HCL [Suspect]
     Indication: ARRHYTHMIA
     Dosage: 200MG ONE TIME ENDOTRACHEAL; 400MG ONCE DAILY ENDOCTRACHEAL
     Route: 007
     Dates: start: 20090623, end: 20090623
  2. AMIODARONE HCL [Suspect]
     Indication: PROPHYLAXIS
     Dosage: 200MG ONE TIME ENDOTRACHEAL; 400MG ONCE DAILY ENDOCTRACHEAL
     Route: 007
     Dates: start: 20090623, end: 20090623
  3. AMIODARONE HCL [Suspect]
     Indication: ARRHYTHMIA
     Dosage: 200MG ONE TIME ENDOTRACHEAL; 400MG ONCE DAILY ENDOCTRACHEAL
     Route: 007
     Dates: start: 20090624, end: 20090626
  4. AMIODARONE HCL [Suspect]
     Indication: PROPHYLAXIS
     Dosage: 200MG ONE TIME ENDOTRACHEAL; 400MG ONCE DAILY ENDOCTRACHEAL
     Route: 007
     Dates: start: 20090624, end: 20090626

REACTIONS (2)
  - ACUTE RESPIRATORY DISTRESS SYNDROME [None]
  - DRUG TOXICITY [None]
